FAERS Safety Report 14933540 (Version 1)
Quarter: 2018Q2

REPORT INFORMATION
  Report Type: Spontaneous
  Country: US (occurrence: US)
  Receive Date: 20180504
  Receipt Date: 20180504
  Transmission Date: 20180711
  Serious: No
  Sender: FDA-Public Use
  Company Number: None

PATIENT
  Age: 59 Year
  Sex: Female

DRUGS (1)
  1. GLATIRAMER 20MG PFS INJ (30/BOX) [Suspect]
     Active Substance: GLATIRAMER

REACTIONS (3)
  - Nuclear magnetic resonance imaging abnormal [None]
  - Condition aggravated [None]
  - Injection site atrophy [None]

NARRATIVE: CASE EVENT DATE: 20180504
